FAERS Safety Report 13334617 (Version 1)
Quarter: 2017Q1

REPORT INFORMATION
  Report Type: Spontaneous
  Country: GB (occurrence: GB)
  Receive Date: 20170314
  Receipt Date: 20170314
  Transmission Date: 20170428
  Serious: Yes (Disabling, Other)
  Sender: FDA-Public Use
  Company Number: GB-009507513-1703GBR005406

PATIENT
  Age: 45 Year
  Sex: Male

DRUGS (1)
  1. KEYTRUDA [Suspect]
     Active Substance: PEMBROLIZUMAB
     Indication: LUNG ADENOCARCINOMA STAGE IV
     Dosage: DOSE ALSO REPORTED AS NOT KNOWN, BUT HAS HAD 12 CYCLES OF TREATMENT IN FEBRUARY 2017
     Dates: start: 20160701

REACTIONS (3)
  - Cutaneous sarcoidosis [Recovering/Resolving]
  - Hypersensitivity [Recovering/Resolving]
  - Skin swelling [Unknown]

NARRATIVE: CASE EVENT DATE: 20161001
